FAERS Safety Report 7024991-8 (Version None)
Quarter: 2010Q4

REPORT INFORMATION
  Report Type: 
  Country: None (occurrence: None)
  Receive Date: 20101001
  Receipt Date: 20100809
  Transmission Date: 20110411
  Serious: No
  Sender: FDA-Public Use
  Company Number: US-NOVEN-10US001360

PATIENT
  Age: 66 Year
  Sex: Female

DRUGS (2)
  1. FENTANYL [Suspect]
     Indication: PAIN
     Dosage: 25 UG/HR
     Route: 062
     Dates: start: 20100701
  2. UNKNOWN [Concomitant]

REACTIONS (2)
  - INADEQUATE ANALGESIA [None]
  - PRODUCT QUALITY ISSUE [None]
